FAERS Safety Report 23484016 (Version 1)
Quarter: 2024Q1

REPORT INFORMATION
  Report Type: Spontaneous
  Country: US (occurrence: US)
  Receive Date: 20240205
  Receipt Date: 20240205
  Transmission Date: 20240409
  Serious: Yes (Other)
  Sender: FDA-Public Use
  Company Number: US-ABBVIE-5611281

PATIENT
  Sex: Female

DRUGS (3)
  1. REFRESH TEARS [Suspect]
     Active Substance: CARBOXYMETHYLCELLULOSE SODIUM
     Indication: Dry eye
  2. REFRESH TEARS [Suspect]
     Active Substance: CARBOXYMETHYLCELLULOSE SODIUM
     Indication: Dry eye
     Route: 047
  3. REFRESH LACRI-LUBE [Suspect]
     Active Substance: MINERAL OIL\PETROLATUM
     Indication: Product used for unknown indication
     Route: 047

REACTIONS (4)
  - Retinal detachment [Unknown]
  - Dry eye [Unknown]
  - Therapeutic product effect incomplete [Unknown]
  - Fall [Unknown]
